FAERS Safety Report 6505258-0 (Version None)
Quarter: 2009Q4

REPORT INFORMATION
  Report Type: 
  Country: None (occurrence: None)
  Receive Date: 20091218
  Receipt Date: 20091204
  Transmission Date: 20100525
  Serious: Yes (Hospitalization)
  Sender: FDA-Public Use
  Company Number: ES-AMGEN-UK366210

PATIENT
  Sex: Female

DRUGS (4)
  1. NEUPOGEN [Suspect]
     Indication: NEUTROPENIA
     Route: 065
  2. RIBAVIRIN [Concomitant]
     Route: 065
  3. PEG-INTRON [Concomitant]
     Route: 065
  4. EPOGEN [Concomitant]
     Route: 065

REACTIONS (1)
  - HYPERGLYCAEMIA [None]
